FAERS Safety Report 9848628 (Version 1)
Quarter: 2013Q4

REPORT INFORMATION
  Report Type: Spontaneous
  Country: US (occurrence: None)
  Receive Date: 20131226
  Receipt Date: 20131226
  Transmission Date: 20140711
  Serious: Yes (Other)
  Sender: FDA-Public Use
  Company Number: PHEH2013US007691

PATIENT
  Age: 64 Year
  Sex: Female

DRUGS (1)
  1. DICLOFENAC (DICLOFENAC) [Suspect]

REACTIONS (8)
  - Swollen tongue [None]
  - Lip swelling [None]
  - Pyrexia [None]
  - Asthenia [None]
  - Malaise [None]
  - Abdominal pain [None]
  - Diarrhoea [None]
  - Headache [None]
